FAERS Safety Report 4316876-2 (Version None)
Quarter: 2004Q1

REPORT INFORMATION
  Report Type: 
  Country: None (occurrence: None)
  Receive Date: 20040309
  Receipt Date: 20030812
  Transmission Date: 20041129
  Serious: Yes (Other)
  Sender: FDA-Public Use
  Company Number: A03200301839

PATIENT
  Age: 66 Year
  Sex: Male
  Weight: 106.5953 kg

DRUGS (8)
  1. ELOXATIN [Suspect]
     Indication: COLON CANCER
     Dosage: 13 MG/M2 OTHER - INTRAVENOUS NOS
     Route: 042
     Dates: start: 20030723, end: 20030723
  2. ELOXATIN [Suspect]
     Indication: METASTASES TO LIVER
     Dosage: 13 MG/M2 OTHER - INTRAVENOUS NOS
     Route: 042
     Dates: start: 20030723, end: 20030723
  3. XELODA [Suspect]
     Indication: COLON CANCER
     Dosage: 2000 MG QD, 2 WEEKS ON, 1 WEEK OFF - ORAL
     Route: 048
  4. XELODA [Suspect]
     Indication: METASTASES TO LIVER
     Dosage: 2000 MG QD, 2 WEEKS ON, 1 WEEK OFF - ORAL
     Route: 048
  5. LEUCOVORIN [Concomitant]
  6. FLUOROURACIL [Concomitant]
  7. IRINOTECAN HYDROCHLORIDE [Concomitant]
  8. DIPHENHYDRAMINE HCL [Concomitant]

REACTIONS (8)
  - CHEST PAIN [None]
  - DYSPNOEA [None]
  - FLUSHING [None]
  - HYPERHIDROSIS [None]
  - HYPERTENSION [None]
  - HYPOTENSION [None]
  - LOSS OF CONSCIOUSNESS [None]
  - PRURITUS [None]
